FAERS Safety Report 6906026-8 (Version None)
Quarter: 2010Q3

REPORT INFORMATION
  Report Type: 
  Country: None (occurrence: None)
  Receive Date: 20100804
  Receipt Date: 20100726
  Transmission Date: 20110219
  Serious: Yes (Other)
  Sender: FDA-Public Use
  Company Number: PHHY2009CA15416

PATIENT
  Sex: Female
  Weight: 56.689 kg

DRUGS (4)
  1. SANDOSTATIN LAR [Suspect]
     Indication: CARCINOID SYNDROME
     Dosage: 30 MG ONCE A MONTH
     Dates: start: 20070310
  2. SANDOSTATIN LAR [Suspect]
     Dosage: 30 MG, EVERY 4 WEEKS
     Route: 030
     Dates: start: 20070320
  3. SANDOSTATIN [Suspect]
     Dosage: 0.75 ML, BID
     Route: 058
  4. SANDOSTATIN [Suspect]
     Dosage: 0.75 ML, TID PRN
     Route: 058

REACTIONS (10)
  - ABDOMINAL DISTENSION [None]
  - DIARRHOEA [None]
  - FATIGUE [None]
  - FLUSHING [None]
  - HOT FLUSH [None]
  - INCORRECT STORAGE OF DRUG [None]
  - MALAISE [None]
  - MOOD SWINGS [None]
  - OEDEMA PERIPHERAL [None]
  - VERTIGO [None]
